FAERS Safety Report 10362362 (Version 1)
Quarter: 2014Q1

REPORT INFORMATION
  Report Type: Spontaneous
  Country: US (occurrence: None)
  Receive Date: 20140306
  Receipt Date: 20140306
  Transmission Date: 20141002
  Serious: Yes (Hospitalization)
  Sender: FDA-Public Use
  Company Number: 163-21880-13051539

PATIENT
  Age: 73 Year
  Sex: Male

DRUGS (5)
  1. REVLIMID (LENALIDOMIDE) (10 MILLIGRAM, CAPSULES) [Suspect]
     Indication: PLASMA CELL MYELOMA
     Route: 048
     Dates: start: 20121203, end: 20130418
  2. ACYCLOVIR (UNKNOWN) [Concomitant]
  3. COUMADIN (WARFARIN SODIUM) (UNKNOWN) [Concomitant]
  4. DEXAMETHASONE (UNKNOWN) [Concomitant]
  5. VELCADE (BORTEZOMIB) (UNKNOWN) [Concomitant]

REACTIONS (1)
  - Pneumonia bacterial [None]
